FAERS Safety Report 19841453 (Version 1)
Quarter: 2021Q3

REPORT INFORMATION
  Report Type: Spontaneous
  Country: US (occurrence: US)
  Receive Date: 20210915
  Receipt Date: 20210915
  Transmission Date: 20211014
  Serious: No
  Sender: FDA-Public Use
  Company Number: US-BRISTOL-MYERS SQUIBB COMPANY-BMS-2021-090321

PATIENT
  Age: 70 Year
  Sex: Female

DRUGS (2)
  1. ELIQUIS [Suspect]
     Active Substance: APIXABAN
     Indication: CEREBROVASCULAR ACCIDENT PROPHYLAXIS
     Dosage: 5 MILLIGRAM, BID
     Route: 048
     Dates: start: 202108
  2. ELIQUIS [Suspect]
     Active Substance: APIXABAN
     Indication: EMBOLISM VENOUS

REACTIONS (7)
  - Oral disorder [Unknown]
  - Dyspnoea [Unknown]
  - Glossodynia [Unknown]
  - Swollen tongue [Unknown]
  - Dizziness [Unknown]
  - Tooth disorder [Unknown]
  - Mouth ulceration [Unknown]
